FAERS Safety Report 11832940 (Version 6)
Quarter: 2016Q2

REPORT INFORMATION
  Report Type: Report from Study
  Country: JP (occurrence: JP)
  Receive Date: 20151214
  Receipt Date: 20160519
  Transmission Date: 20160815
  Serious: Yes (Hospitalization)
  Sender: FDA-Public Use
  Company Number: JP-PFIZER INC-2015440123

PATIENT
  Age: 61 Year
  Sex: Female
  Weight: 42 kg

DRUGS (4)
  1. CRIZOTINIB [Suspect]
     Active Substance: CRIZOTINIB
     Indication: NON-SMALL CELL LUNG CANCER METASTATIC
     Dosage: 250 MG, 2X/DAY
     Route: 048
     Dates: start: 20140926, end: 20141016
  2. SINSERON [Concomitant]
     Active Substance: INDISETRON HYDROCHLORIDE
     Dosage: 8 MG, 1X/DAY
     Route: 048
     Dates: start: 20141001
  3. CRIZOTINIB [Suspect]
     Active Substance: CRIZOTINIB
     Dosage: 200 MG, 2X/DAY
     Route: 048
     Dates: start: 20141027, end: 20141125
  4. GANATON [Concomitant]
     Active Substance: ITOPRIDE
     Dosage: 50 MG, 3X/DAY
     Route: 048

REACTIONS (3)
  - Dehydration [Recovered/Resolved]
  - Nausea [Recovered/Resolved]
  - Vomiting [Recovered/Resolved]

NARRATIVE: CASE EVENT DATE: 20141016
